FAERS Safety Report 16629482 (Version 1)
Quarter: 2019Q3

REPORT INFORMATION
  Report Type: Spontaneous
  Country: US (occurrence: US)
  Receive Date: 20190612
  Receipt Date: 20190612
  Transmission Date: 20191004
  Serious: No
  Sender: FDA-Public Use
  Company Number: None

PATIENT

DRUGS (1)
  1. DEXMEDETOMIDINE HCL [Suspect]
     Active Substance: DEXMEDETOMIDINE HYDROCHLORIDE
     Dosage: ?          OTHER STRENGTH:200MCG/2ML;OTHER DOSE:200 MCG/2 ML;?
     Route: 058

REACTIONS (1)
  - Product use complaint [None]
